FAERS Safety Report 7538780-9 (Version None)
Quarter: 2011Q2

REPORT INFORMATION
  Report Type: 
  Country: None (occurrence: None)
  Receive Date: 20110610
  Receipt Date: 20091203
  Transmission Date: 20111010
  Serious: Yes (Death, Other)
  Sender: FDA-Public Use
  Company Number: US-BAYER-200941736NA

PATIENT
  Age: 65 Year
  Sex: Female
  Weight: 81 kg

DRUGS (20)
  1. SUCCINYLCHOLINE CHLORIDE [Concomitant]
     Dosage: 100 MG, UNK
     Route: 042
     Dates: start: 20050429, end: 20050429
  2. LEVAQUIN [Concomitant]
     Dosage: 250 MG, UNK
     Route: 048
     Dates: start: 20050330
  3. ZOCOR [Concomitant]
     Dosage: 40 MG, QD
     Route: 048
  4. PLAVIX [Concomitant]
     Dosage: 75 MG, QD
     Route: 048
  5. PROTAMINE SULFATE [Concomitant]
     Dosage: UNK
     Dates: start: 20050429, end: 20050429
  6. HEPARIN [Concomitant]
     Dosage: 10000 U, UNK
     Route: 042
     Dates: start: 20050429
  7. REGULAR INSULIN [Concomitant]
     Dosage: 5 U, UNK
     Route: 042
     Dates: start: 20050429
  8. LASIX [Concomitant]
     Dosage: 20 MG, QD
     Route: 048
  9. NORVASC [Concomitant]
     Dosage: 5 MG, QD
     Route: 048
  10. COREG [Concomitant]
     Dosage: 6.25 MG, BID
     Route: 048
  11. REGLAN [Concomitant]
     Dosage: 10 MG, UNK
     Route: 042
     Dates: start: 20050429
  12. ANCEF [Concomitant]
     Dosage: 1 G, UNK
     Route: 042
     Dates: start: 20050429
  13. TRASYLOL [Suspect]
     Indication: CORONARY ARTERY BYPASS
     Dosage: 200 ML X 1/2; THEN 50 ML; THEN 200 ML
     Route: 042
     Dates: start: 20050429, end: 20050429
  14. IMDUR [Concomitant]
     Dosage: 60 MG, BID
     Route: 048
  15. NORVASC [Concomitant]
     Dosage: 10 MG, QD
     Route: 048
  16. ETOMIDATE [Concomitant]
     Dosage: 10 MG, UNK
     Route: 042
     Dates: start: 20050429, end: 20050429
  17. VERSED [Concomitant]
     Dosage: 2 MG, UNK
     Route: 042
     Dates: start: 20050429
  18. ASPIRIN [Concomitant]
     Dosage: 25/50 MG DAILY
     Route: 048
  19. AMIODARONE HCL [Concomitant]
     Dosage: 200 MG, QD
     Route: 048
  20. NORCURON [Concomitant]
     Dosage: 2 MG, UNK
     Route: 042
     Dates: start: 20050429, end: 20050429

REACTIONS (14)
  - STRESS [None]
  - ANHEDONIA [None]
  - RENAL IMPAIRMENT [None]
  - FEAR [None]
  - PAIN [None]
  - RENAL FAILURE CHRONIC [None]
  - ANXIETY [None]
  - RENAL INJURY [None]
  - UNEVALUABLE EVENT [None]
  - DEATH [None]
  - MULTI-ORGAN FAILURE [None]
  - INJURY [None]
  - RENAL FAILURE [None]
  - EMOTIONAL DISTRESS [None]
